FAERS Safety Report 24966104 (Version 1)
Quarter: 2025Q1

REPORT INFORMATION
  Report Type: Spontaneous
  Country: PT (occurrence: PT)
  Receive Date: 20250213
  Receipt Date: 20250213
  Transmission Date: 20250409
  Serious: Yes (Disabling)
  Sender: MERCK SHARP & DOHME LLC
  Company Number: PT-PFIZER INC-PV202500015146

PATIENT
  Age: 32 Year
  Sex: Female

DRUGS (2)
  1. TUCATINIB [Suspect]
     Active Substance: TUCATINIB
     Indication: Metastases to central nervous system
     Dates: start: 202412
  2. DEXAMETHASONE [Suspect]
     Active Substance: DEXAMETHASONE

REACTIONS (2)
  - Drug interaction [Recovering/Resolving]
  - Myopathy [Recovering/Resolving]
